FAERS Safety Report 7771776-0 (Version None)
Quarter: 2011Q3

REPORT INFORMATION
  Report Type: 
  Country: None (occurrence: None)
  Receive Date: 20110922
  Receipt Date: 20110913
  Transmission Date: 20111222
  Serious: Yes (Hospitalization, Other)
  Sender: FDA-Public Use
  Company Number: US-ELI_LILLY_AND_COMPANY-US201109003922

PATIENT
  Sex: Male

DRUGS (3)
  1. HUMALOG [Suspect]
     Indication: DIABETES MELLITUS
     Dosage: UNK, TID
     Dates: start: 20090101
  2. LEVEMIR [Concomitant]
     Dosage: 40 U, EACH EVENING
  3. GLUCOPHAGE [Concomitant]
     Dosage: 500 MG, BID

REACTIONS (4)
  - PNEUMONIA [None]
  - RIB FRACTURE [None]
  - IMPAIRED HEALING [None]
  - PULMONARY HAEMORRHAGE [None]
